FAERS Safety Report 6648143-6 (Version None)
Quarter: 2010Q1

REPORT INFORMATION
  Report Type: 
  Country: None (occurrence: None)
  Receive Date: 20100324
  Receipt Date: 20100317
  Transmission Date: 20100710
  Serious: Yes (Other)
  Sender: FDA-Public Use
  Company Number: FR-BRISTOL-MYERS SQUIBB COMPANY-15025638

PATIENT
  Sex: Male

DRUGS (2)
  1. IRBESARTAN [Suspect]
     Indication: HYPERTENSION
     Route: 048
  2. COAPROVEL [Concomitant]
     Indication: HYPERTENSION

REACTIONS (1)
  - EXTRAPYRAMIDAL DISORDER [None]
